FAERS Safety Report 17282371 (Version 1)
Quarter: 2020Q1

REPORT INFORMATION
  Report Type: Spontaneous
  Country: US (occurrence: US)
  Receive Date: 20200117
  Receipt Date: 20200117
  Transmission Date: 20200409
  Serious: No
  Sender: FDA-Public Use
  Company Number: None

PATIENT
  Age: 19 Year
  Sex: Female
  Weight: 104.33 kg

DRUGS (2)
  1. POSTNATAL VITAMINS [Concomitant]
  2. PARAGARD T 380A [Suspect]
     Active Substance: COPPER

REACTIONS (4)
  - Embedded device [None]
  - Discomfort [None]
  - Device dislocation [None]
  - Muscle spasms [None]

NARRATIVE: CASE EVENT DATE: 20191218
